FAERS Safety Report 26109556 (Version 4)
Quarter: 2025Q4

REPORT INFORMATION
  Report Type: Report from Study
  Country: CA (occurrence: CA)
  Receive Date: 20251201
  Receipt Date: 20251211
  Transmission Date: 20260118
  Serious: Yes (Other)
  Sender: HLS THERAPEUTICS
  Company Number: CA-HLS-202502342

PATIENT
  Age: 31 Year
  Sex: Female
  Weight: 97 kg

DRUGS (20)
  1. CLOZARIL [Suspect]
     Active Substance: CLOZAPINE
     Indication: Product used for unknown indication
     Dosage: START DATE : 21-AUG-2025
     Route: 048
  2. CLOZARIL [Suspect]
     Active Substance: CLOZAPINE
     Indication: Product used for unknown indication
     Route: 065
  3. CLOZARIL [Suspect]
     Active Substance: CLOZAPINE
     Indication: Product used for unknown indication
     Dosage: START DATE :  13-NOV-2025; 450MG FOR 4 DAYS
     Route: 048
  4. CLOZARIL [Suspect]
     Active Substance: CLOZAPINE
     Indication: Product used for unknown indication
     Dosage: 462.5MG  FOR 3 DAYS
     Route: 048
  5. CLOZARIL [Suspect]
     Active Substance: CLOZAPINE
     Indication: Product used for unknown indication
     Dosage: 475MG FOR 4 DAYS
     Route: 048
  6. CLOZARIL [Suspect]
     Active Substance: CLOZAPINE
     Indication: Product used for unknown indication
     Route: 048
  7. CLOZARIL [Suspect]
     Active Substance: CLOZAPINE
     Indication: Product used for unknown indication
     Dosage: AT BEDTIME??START DATE: 25-NOV-2025
     Route: 065
  8. ATROPINE [Concomitant]
     Active Substance: ATROPINE
     Indication: Salivary hypersecretion
     Dosage: 1 TO 3 DROPS BID PRN
     Route: 060
     Dates: start: 20251002
  9. SEROQUEL [Concomitant]
     Active Substance: QUETIAPINE FUMARATE
     Indication: Anxiety
     Dosage: 25-50MG BID PRN
     Route: 065
     Dates: start: 20250918
  10. SEROQUEL [Concomitant]
     Active Substance: QUETIAPINE FUMARATE
     Indication: Psychotic disorder
     Dosage: 25-50MG BID PRN
     Route: 065
     Dates: start: 20250918
  11. LACTULOSE [Concomitant]
     Active Substance: LACTULOSE
     Indication: Product used for unknown indication
     Dosage: 10G/15ML??FOUR TIMES A DAY PRN
     Route: 065
     Dates: start: 20251002
  12. DOCUSATE [Concomitant]
     Active Substance: DOCUSATE
     Indication: Product used for unknown indication
     Route: 048
     Dates: start: 20250908
  13. COGENTIN [Concomitant]
     Active Substance: BENZTROPINE MESYLATE
     Indication: Product used for unknown indication
     Dosage: PRN
     Route: 065
     Dates: start: 20251002
  14. SENNA [Concomitant]
     Active Substance: SENNOSIDES
     Indication: Product used for unknown indication
     Dosage: 17.2MG BID
     Route: 065
     Dates: start: 20250908
  15. METFORMIN [Concomitant]
     Active Substance: METFORMIN HYDROCHLORIDE
     Route: 048
  16. NADOLOL [Concomitant]
     Active Substance: NADOLOL
     Dosage: AT BEDTIME
     Route: 065
     Dates: start: 20251124
  17. POLYETHYLENE GLYCOL [Concomitant]
     Active Substance: POLYETHYLENE GLYCOL
     Route: 065
  18. OLANZAPINE [Concomitant]
     Active Substance: OLANZAPINE
     Indication: Product used for unknown indication
     Route: 065
  19. INVEGA [Concomitant]
     Active Substance: PALIPERIDONE
     Indication: Product used for unknown indication
     Route: 065
  20. BETHANECHOL [Concomitant]
     Active Substance: BETHANECHOL
     Indication: Product used for unknown indication
     Dosage: 10 MG AT 1-3 TABS AT NIGHT AS NEEDED
     Route: 065

REACTIONS (19)
  - Chest pain [Recovered/Resolved]
  - Rash pruritic [Unknown]
  - Hallucination, auditory [Unknown]
  - Hypertension [Unknown]
  - Constipation [Unknown]
  - Delusion [Unknown]
  - Dizziness [Unknown]
  - Drooling [Unknown]
  - Blood creatine phosphokinase increased [Unknown]
  - C-reactive protein increased [Recovered/Resolved]
  - Influenza like illness [Unknown]
  - Dyspepsia [Unknown]
  - Urinary retention [Recovering/Resolving]
  - Myalgia [Unknown]
  - Nausea [Unknown]
  - Nocturia [Unknown]
  - Orthostatic hypotension [Recovered/Resolved]
  - Sinus tachycardia [Unknown]
  - Vomiting [Unknown]

NARRATIVE: CASE EVENT DATE: 20250924
